FAERS Safety Report 8960873 (Version 1)
Quarter: 2012Q4

REPORT INFORMATION
  Report Type: Spontaneous
  Country: US (occurrence: None)
  Receive Date: 20121128
  Receipt Date: 20121128
  Transmission Date: 20130627
  Serious: Yes (Hospitalization)
  Sender: FDA-Public Use
  Company Number: AUR-APL-2012-05049

PATIENT
  Age: 50 Year
  Sex: Female
  Weight: 77.1 kg

DRUGS (8)
  1. METOPROLOL (METOPROLOL) [Suspect]
     Indication: BLOOD PRESSURE HIGH
     Dosage: (25 mg, 2 in 1 D)
     Route: 065
     Dates: start: 2010
  2. NORVASC (AMLODIPINE BESILATE) [Suspect]
     Indication: BLOOD PRESSURE HIGH
     Route: 065
     Dates: start: 2004
  3. NORVASC (AMLODIPINE BESILATE) [Suspect]
     Indication: BLOOD PRESSURE HIGH
  4. ACETYLSALICYLIC ACID [Suspect]
     Indication: BLOOD PRESSURE HIGH
     Dates: start: 2003
  5. HYDROCHLOROTHIAZIDE TRIAMTERENE [Suspect]
     Indication: BLOOD PRESSURE HIGH
  6. RANITIDINE HYDROCHLORIDE (RANITIDINE HYDROCHLORIDE) [Concomitant]
  7. CALCIUM CARBONATE (CALCIUM CARBONATE) [Concomitant]
  8. CETIRIZINE HYDROCHLORIDE (CETIRIZINE HYDROCHLORIDE) [Concomitant]

REACTIONS (6)
  - Oedema peripheral [None]
  - Joint swelling [None]
  - Pain [None]
  - Hypertension [None]
  - Blood thyroid stimulating hormone abnormal [None]
  - Anaemia [None]
